FAERS Safety Report 4508343-8 (Version None)
Quarter: 2004Q4

REPORT INFORMATION
  Report Type: 
  Country: None (occurrence: None)
  Receive Date: 20041123
  Receipt Date: 20040113
  Transmission Date: 20050328
  Serious: No
  Sender: FDA-Public Use
  Company Number: US-GLAXOSMITHKLINE-A0492889A

PATIENT
  Age: 57 Year
  Sex: Male

DRUGS (3)
  1. WELLBUTRIN SR [Suspect]
     Indication: DEPRESSION
     Dosage: 150MG TWICE PER DAY
     Route: 048
     Dates: start: 20031201, end: 20031230
  2. ZITHROMAX [Concomitant]
  3. PROSCAR [Concomitant]

REACTIONS (3)
  - PRURITUS [None]
  - RASH [None]
  - URTICARIA [None]
